FAERS Safety Report 4574825-6 (Version None)
Quarter: 2005Q1

REPORT INFORMATION
  Report Type: 
  Country: None (occurrence: None)
  Receive Date: 20050208
  Receipt Date: 20040709
  Transmission Date: 20050727
  Serious: No
  Sender: FDA-Public Use
  Company Number: US-GLAXOSMITHKLINE-A0517662A

PATIENT
  Age: 49 Year
  Sex: Male
  Weight: 78.2 kg

DRUGS (1)
  1. PAXIL CR [Suspect]
     Indication: DEPRESSION
     Dosage: 25MG PER DAY
     Route: 048
     Dates: start: 20040701

REACTIONS (2)
  - GASTRIC DISORDER [None]
  - URINE FLOW DECREASED [None]
